FAERS Safety Report 8154732-2 (Version None)
Quarter: 2012Q1

REPORT INFORMATION
  Report Type: 
  Country: None (occurrence: None)
  Receive Date: 20120221
  Receipt Date: 20120208
  Transmission Date: 20120608
  Serious: Yes (Hospitalization)
  Sender: FDA-Public Use
  Company Number: PHHY2010DE89336

PATIENT
  Sex: Female
  Weight: 65 kg

DRUGS (10)
  1. AGGRENOX [Concomitant]
     Dates: start: 20100625
  2. VALPROIC ACID [Concomitant]
     Dates: start: 20070101
  3. GASTROSIL [Concomitant]
     Dates: start: 20091210
  4. TASIGNA [Suspect]
     Indication: CHRONIC MYELOID LEUKAEMIA
     Dosage: 400 MG, DAILY
     Route: 048
     Dates: start: 20090924
  5. TRAMADOL HCL [Concomitant]
     Dates: start: 20100310
  6. PANTOPRAZOLE [Concomitant]
     Dates: start: 20091210
  7. IBUPROFEN [Concomitant]
     Dates: start: 20100331
  8. RAMIPRIL [Concomitant]
     Dates: start: 20100625
  9. SIMVASTATIN [Concomitant]
     Dates: start: 20100616
  10. CETIRIZINE HCL [Concomitant]
     Dates: start: 20091109

REACTIONS (16)
  - NECK PAIN [None]
  - MUSCULAR WEAKNESS [None]
  - INTERVERTEBRAL DISC PROTRUSION [None]
  - DYSPEPSIA [None]
  - BONE PAIN [None]
  - ABDOMINAL PAIN UPPER [None]
  - RASH [None]
  - COORDINATION ABNORMAL [None]
  - ARTERIAL OCCLUSIVE DISEASE [None]
  - FATIGUE [None]
  - CORONARY ARTERY STENOSIS [None]
  - CHEST PAIN [None]
  - LACUNAR INFARCTION [None]
  - INTERMITTENT CLAUDICATION [None]
  - PAIN [None]
  - DRY SKIN [None]
